FAERS Safety Report 9681601 (Version 1)
Quarter: 2013Q4

REPORT INFORMATION
  Report Type: Spontaneous
  Country: BR (occurrence: BR)
  Receive Date: 20131111
  Receipt Date: 20131111
  Transmission Date: 20140711
  Serious: Yes (Hospitalization, Other)
  Sender: FDA-Public Use
  Company Number: BR-PFIZER INC-2013318678

PATIENT
  Age: 54 Year
  Sex: Male
  Weight: 82 kg

DRUGS (1)
  1. CHAMPIX [Suspect]
     Dosage: UNK
     Route: 048
     Dates: start: 201305, end: 2013

REACTIONS (5)
  - Arterial occlusive disease [Unknown]
  - Angina pectoris [Unknown]
  - Hypertension [Unknown]
  - Headache [Unknown]
  - Pain in extremity [Unknown]
